FAERS Safety Report 13678522 (Version 2)
Quarter: 2017Q3

REPORT INFORMATION
  Report Type: Spontaneous
  Country: HU (occurrence: HU)
  Receive Date: 20170622
  Receipt Date: 20170823
  Transmission Date: 20171127
  Serious: Yes (Hospitalization)
  Sender: FDA-Public Use
  Company Number: HU-PFIZER INC-2017266310

PATIENT
  Age: 73 Year
  Sex: Male

DRUGS (5)
  1. LYRICA [Suspect]
     Active Substance: PREGABALIN
     Indication: NEURALGIA
     Dosage: 75 MG, 2X/DAY
  2. SP 54 [Concomitant]
     Active Substance: PENTOSAN POLYSULFATE SODIUM
  3. DIAPREL [Concomitant]
     Active Substance: GLICLAZIDE
  4. CHINOTAL [Concomitant]
     Active Substance: PENTOXIFYLLINE
  5. METFORMIN [Concomitant]
     Active Substance: METFORMIN HYDROCHLORIDE

REACTIONS (3)
  - Weight decreased [Not Recovered/Not Resolved]
  - Pancreatic carcinoma [Not Recovered/Not Resolved]
  - Yellow skin [Not Recovered/Not Resolved]
